APPROVED DRUG PRODUCT: GENTAMICIN SULFATE
Active Ingredient: GENTAMICIN SULFATE
Strength: EQ 0.1% BASE
Dosage Form/Route: OINTMENT;TOPICAL
Application: A062534 | Product #001
Applicant: PHARMADERM DIV ALTANA INC
Approved: Oct 10, 1984 | RLD: No | RS: No | Type: DISCN